FAERS Safety Report 8938623 (Version 1)
Quarter: 2012Q4

REPORT INFORMATION
  Report Type: Spontaneous
  Country: US (occurrence: None)
  Receive Date: 20121129
  Receipt Date: 20121129
  Transmission Date: 20130627
  Serious: Yes (Hospitalization)
  Sender: FDA-Public Use
  Company Number: None

PATIENT
  Age: 69 Year
  Sex: Female

DRUGS (2)
  1. CITALOPRAM [Suspect]
     Dosage: 40mg once daily po
     Route: 048
  2. TRAZODONE [Suspect]
     Dosage: 150mg daily po
     Route: 048

REACTIONS (2)
  - Mental status changes [None]
  - Electrocardiogram QT prolonged [None]
